FAERS Safety Report 12838067 (Version 2)
Quarter: 2016Q4

REPORT INFORMATION
  Report Type: Spontaneous
  Country: FR (occurrence: FR)
  Receive Date: 20161012
  Receipt Date: 20161107
  Transmission Date: 20170207
  Serious: Yes (Death)
  Sender: FDA-Public Use
  Company Number: FR-AUROBINDO-AUR-APL-2016-12358

PATIENT
  Age: 36 Year
  Sex: Female

DRUGS (3)
  1. ARTICAINE [Suspect]
     Active Substance: ARTICAINE
     Indication: DENTAL IMPLANTATION
     Dosage: SINGLE INTAKE
     Route: 004
     Dates: start: 20160914
  2. PREDNISONE ARROW TABLET 20MG [Suspect]
     Active Substance: PREDNISONE
     Indication: PROPHYLAXIS
     Dosage: 60 MG, SINGLE INTAKE
     Route: 048
     Dates: start: 20160914
  3. AMOXICILLIN ARROW FILM-COATED DISPERSIBLE TABLET 1G [Suspect]
     Active Substance: AMOXICILLIN
     Indication: ANTIBIOTIC PROPHYLAXIS
     Dosage: 1 G, TWO TIMES A DAY
     Route: 048
     Dates: start: 20160913, end: 20160914

REACTIONS (2)
  - Laryngeal oedema [Fatal]
  - Acute pulmonary oedema [Fatal]

NARRATIVE: CASE EVENT DATE: 20160915
